FAERS Safety Report 16528428 (Version 1)
Quarter: 2019Q3

REPORT INFORMATION
  Report Type: Spontaneous
  Country: US (occurrence: US)
  Receive Date: 20190703
  Receipt Date: 20190703
  Transmission Date: 20191004
  Serious: Yes (Other)
  Sender: FDA-Public Use
  Company Number: US-AMREGENT-20191390

PATIENT
  Age: 51 Year
  Sex: Female

DRUGS (2)
  1. VENOFER [Suspect]
     Active Substance: IRON SUCROSE
     Dosage: UNKNOWN (THIRD DOSE)
     Route: 042
     Dates: start: 20190611, end: 20190611
  2. BENADRYL [Concomitant]
     Active Substance: DIPHENHYDRAMINE HYDROCHLORIDE
     Dosage: UNKNOWN
     Route: 065

REACTIONS (12)
  - Blood pressure systolic increased [Unknown]
  - Nausea [Unknown]
  - Dyspnoea [Unknown]
  - Malaise [Unknown]
  - Hypersensitivity [Unknown]
  - Off label use [Unknown]
  - Flushing [Unknown]
  - Vomiting [Unknown]
  - Feeling hot [Unknown]
  - Abdominal pain [Unknown]
  - Muscle spasms [Unknown]
  - Tremor [Unknown]

NARRATIVE: CASE EVENT DATE: 20190611
